FAERS Safety Report 25547502 (Version 1)
Quarter: 2025Q3

REPORT INFORMATION
  Report Type: Spontaneous
  Country: US (occurrence: US)
  Receive Date: 20250714
  Receipt Date: 20250714
  Transmission Date: 20251020
  Serious: No
  Sender: ABBVIE
  Company Number: US-ABBVIE-6360511

PATIENT
  Sex: Female

DRUGS (2)
  1. LUMIGAN [Suspect]
     Active Substance: BIMATOPROST
     Indication: Intraocular pressure test
     Route: 047
  2. LUMIGAN [Suspect]
     Active Substance: BIMATOPROST
     Indication: Glaucoma

REACTIONS (4)
  - Myalgia [Unknown]
  - Eye pain [Unknown]
  - Eye pruritus [Unknown]
  - Arthralgia [Unknown]
